FAERS Safety Report 5050211-X (Version None)
Quarter: 2006Q3

REPORT INFORMATION
  Report Type: 
  Country: None (occurrence: None)
  Receive Date: 20060713
  Receipt Date: 20050816
  Transmission Date: 20061208
  Serious: No
  Sender: FDA-Public Use
  Company Number: US-BRISTOL-MYERS SQUIBB COMPANY-13078647

PATIENT
  Age: 65 Year
  Sex: Female

DRUGS (4)
  1. SINEMET CR [Suspect]
     Indication: PARKINSON'S DISEASE
     Dates: start: 20040517
  2. REQUIP [Concomitant]
     Dosage: DURATION OF THERAPY:  ^YEARS^
  3. DYAZIDE [Concomitant]
     Dosage: DOSE VALUE:  37.5/25.  DURATION OF THERAPY:  ^YEARS^
  4. CELEXA [Concomitant]
     Dosage: DURATION OF THERAPY:  ^YEARS^

REACTIONS (1)
  - DRUG INEFFECTIVE [None]
